FAERS Safety Report 12644460 (Version 2)
Quarter: 2016Q3

REPORT INFORMATION
  Report Type: Report from Study
  Country: PL (occurrence: PL)
  Receive Date: 20160811
  Receipt Date: 20160823
  Transmission Date: 20161109
  Serious: Yes (Other)
  Sender: FDA-Public Use
  Company Number: PHHO2014PL018418

PATIENT
  Age: 75 Year
  Sex: Female
  Weight: 65 kg

DRUGS (12)
  1. ETOPOSIDE. [Suspect]
     Active Substance: ETOPOSIDE
     Indication: LYMPHOMA
     Dosage: 100 MG, QD
     Route: 042
     Dates: start: 20140704, end: 20140708
  2. METHOTREXATE. [Suspect]
     Active Substance: METHOTREXATE
     Indication: LYMPHOMA
     Dosage: 12 MG, UNK
     Route: 065
     Dates: start: 20140708
  3. CYTARABINE. [Suspect]
     Active Substance: CYTARABINE
     Indication: LYMPHOMA
     Dosage: 830 U, BID
     Route: 065
     Dates: start: 20140704, end: 20140705
  4. IFOSFAMIDE. [Suspect]
     Active Substance: IFOSFAMIDE
     Indication: LYMPHOMA
     Dosage: 1600 U, QD
     Route: 042
     Dates: start: 20140704, end: 20140708
  5. MESNA. [Suspect]
     Active Substance: MESNA
     Indication: LYMPHOMA
     Dosage: 332 G, UNK
     Route: 065
  6. IFOSFAMIDE. [Suspect]
     Active Substance: IFOSFAMIDE
     Dosage: 1630 MG, QD
     Route: 042
  7. MESNA. [Suspect]
     Active Substance: MESNA
     Dosage: 1324 MG, UNK
     Route: 065
  8. CALCIUM FOLINATE [Suspect]
     Active Substance: LEUCOVORIN CALCIUM
     Indication: LYMPHOMA
     Dosage: 15 MG, UNK
     Route: 065
     Dates: start: 20140709
  9. GRANULOCYTE COLONY STIMULATING FACTOR [Suspect]
     Active Substance: GRANULOCYTE COLONY-STIMULATING FACTOR NOS
     Indication: LYMPHOMA
     Dosage: UNK
     Route: 065
     Dates: start: 20140710
  10. OFATUMUMAB [Suspect]
     Active Substance: OFATUMUMAB
     Indication: LYMPHOMA
     Dosage: 1000 MG,
     Route: 065
     Dates: start: 20140704
  11. ETOPOSIDE. [Suspect]
     Active Substance: ETOPOSIDE
     Dosage: 98 MG, UNK
     Route: 042
  12. CYTARABINE. [Suspect]
     Active Substance: CYTARABINE
     Dosage: 815 MG, BID
     Route: 065

REACTIONS (1)
  - Sepsis [Recovered/Resolved]

NARRATIVE: CASE EVENT DATE: 20140714
